FAERS Safety Report 19105595 (Version 34)
Quarter: 2023Q2

REPORT INFORMATION
  Report Type: Spontaneous
  Country: None (occurrence: GB)
  Receive Date: 20210408
  Receipt Date: 20230531
  Transmission Date: 20230722
  Serious: Yes (Hospitalization, Disabling, Other)
  Sender: FDA-Public Use
  Company Number: GB-MHRA-ADR 25020046

PATIENT
  Age: 24 Year
  Sex: Male

DRUGS (23)
  1. CITALOPRAM [Suspect]
     Active Substance: CITALOPRAM HYDROBROMIDE
     Indication: Antidepressant therapy
     Dosage: 10 MILLIGRAM
     Route: 048
     Dates: start: 201506, end: 201509
  2. CITALOPRAM [Suspect]
     Active Substance: CITALOPRAM HYDROBROMIDE
     Indication: Headache
     Dosage: 10 MILLIGRAM
     Route: 065
     Dates: start: 201507, end: 201509
  3. CITALOPRAM [Suspect]
     Active Substance: CITALOPRAM HYDROBROMIDE
     Indication: Ill-defined disorder
  4. ESCITALOPRAM [Suspect]
     Active Substance: ESCITALOPRAM OXALATE
     Indication: Antidepressant therapy
     Dosage: 10 MILLIGRAM, ONCE A DAY
     Route: 065
     Dates: end: 201509
  5. ESCITALOPRAM [Suspect]
     Active Substance: ESCITALOPRAM OXALATE
     Dosage: 10 MILLIGRAM, DAILY 10MG DAILY
     Route: 048
     Dates: start: 201507, end: 201509
  6. ESCITALOPRAM [Suspect]
     Active Substance: ESCITALOPRAM OXALATE
     Dosage: 10 MILLIGRAM, ONCE A DAY
     Route: 065
     Dates: start: 201509, end: 201509
  7. MIRTAZAPINE [Suspect]
     Active Substance: MIRTAZAPINE
     Indication: Antidepressant therapy
     Dosage: 7.5 MILLIGRAM, ONCE A DAY
     Route: 048
     Dates: start: 2014, end: 2015
  8. MIRTAZAPINE [Suspect]
     Active Substance: MIRTAZAPINE
     Indication: Aggression
     Dosage: 45 MILLIGRAM, ONCE A DAY
     Route: 048
     Dates: start: 2014, end: 2015
  9. RISPERIDONE [Suspect]
     Active Substance: RISPERIDONE
     Indication: Ill-defined disorder
     Dosage: 10 MILLIGRAM
     Route: 048
     Dates: start: 201507
  10. RISPERIDONE [Suspect]
     Active Substance: RISPERIDONE
     Indication: Physical disability
  11. SERTRALINE HYDROCHLORIDE [Suspect]
     Active Substance: SERTRALINE HYDROCHLORIDE
     Indication: Antidepressant therapy
     Dosage: 50 MILLIGRAM, INITIALLY THEN 100 MG
     Route: 048
     Dates: start: 2014
  12. SERTRALINE HYDROCHLORIDE [Suspect]
     Active Substance: SERTRALINE HYDROCHLORIDE
     Indication: Homicidal ideation
     Dosage: 100 MILLIGRAM
     Route: 048
     Dates: start: 2014
  13. SERTRALINE HYDROCHLORIDE [Suspect]
     Active Substance: SERTRALINE HYDROCHLORIDE
     Dosage: 50 MILLIGRAM
     Route: 048
     Dates: start: 20140615
  14. TRAZODONE [Suspect]
     Active Substance: TRAZODONE HYDROCHLORIDE
     Indication: Antidepressant therapy
     Dosage: 100 MILLIGRAM, ONCE A DAY
     Route: 048
     Dates: start: 2015, end: 201507
  15. TRAZODONE [Suspect]
     Active Substance: TRAZODONE HYDROCHLORIDE
     Indication: Poor quality sleep
     Dosage: 50 MILLIGRAM ONCE A DAY
     Route: 048
     Dates: start: 2015, end: 201507
  16. CIPRALEX [Suspect]
     Active Substance: ESCITALOPRAM OXALATE
     Indication: Antidepressant therapy
     Dosage: 10 MILLIGRAM, ONCE A DAY
     Route: 048
     Dates: start: 201507, end: 201509
  17. CIPRALEX [Suspect]
     Active Substance: ESCITALOPRAM OXALATE
     Dosage: UNK
     Route: 065
     Dates: start: 201509
  18. RISPERDAL [Suspect]
     Active Substance: RISPERIDONE
     Indication: Physical disability
     Dosage: UNK
     Route: 048
  19. RISPERDAL [Suspect]
     Active Substance: RISPERIDONE
     Indication: Ill-defined disorder
  20. TEMAZEPAM [Suspect]
     Active Substance: TEMAZEPAM
     Indication: Poor quality sleep
     Dosage: 10 MILLIGRAM, ONCE A DAY
     Route: 048
  21. TEMAZEPAM [Suspect]
     Active Substance: TEMAZEPAM
     Indication: Headache
  22. SERTRALINE [Concomitant]
     Active Substance: SERTRALINE HYDROCHLORIDE
     Indication: Antidepressant therapy
     Dosage: 50 MILLIGRAM
     Route: 048
     Dates: start: 2014
  23. SERTRALINE [Concomitant]
     Active Substance: SERTRALINE HYDROCHLORIDE
     Dosage: 100 MILLIGRAM
     Route: 048
     Dates: start: 20140615

REACTIONS (28)
  - Aggression [Unknown]
  - Ill-defined disorder [Unknown]
  - Psychotic disorder [Unknown]
  - Tachyphrenia [Unknown]
  - Hallucination, auditory [Unknown]
  - Somnolence [Unknown]
  - Hallucination, visual [Unknown]
  - Agitation [Unknown]
  - Anger [Unknown]
  - Mood swings [Unknown]
  - Paranoia [Unknown]
  - Loss of libido [Unknown]
  - Insomnia [Unknown]
  - Intrusive thoughts [Unknown]
  - Irritability [Unknown]
  - Nausea [Unknown]
  - Headache [Unknown]
  - Feeling abnormal [Unknown]
  - Confusional state [Unknown]
  - Sedation [Unknown]
  - Amnesia [Unknown]
  - Withdrawal syndrome [Unknown]
  - Homicidal ideation [Unknown]
  - Suicidal ideation [Unknown]
  - Suicide attempt [Unknown]
  - Off label use [Unknown]
  - Product use in unapproved indication [Unknown]
  - Physical disability [Unknown]
